FAERS Safety Report 7653366-3 (Version None)
Quarter: 2011Q3

REPORT INFORMATION
  Report Type: 
  Country: None (occurrence: None)
  Receive Date: 20110728
  Receipt Date: 20110714
  Transmission Date: 20111222
  Serious: Yes (Hospitalization, Disabling, Other)
  Sender: FDA-Public Use
  Company Number: JP-2011-10222

PATIENT
  Age: 77 Year
  Sex: Male
  Weight: 55 kg

DRUGS (3)
  1. PLAVIX [Suspect]
     Indication: ARTERIOSCLEROSIS OBLITERANS
     Dosage: 75 MG MILLIGRAM(S), QD, ORAL
     Route: 048
     Dates: start: 20101208, end: 20110207
  2. PLETAL [Suspect]
     Indication: ARTERIOSCLEROSIS OBLITERANS
     Dosage: 100 MG MILLIGRAM(S), QD, ORAL
     Route: 048
     Dates: start: 20101207, end: 20110207
  3. ASPIRIN [Concomitant]

REACTIONS (2)
  - RENAL IMPAIRMENT [None]
  - EOSINOPHIL COUNT INCREASED [None]
